FAERS Safety Report 5889139-1 (Version None)
Quarter: 2008Q3

REPORT INFORMATION
  Report Type: 
  Country: None (occurrence: None)
  Receive Date: 20080919
  Receipt Date: 20080916
  Transmission Date: 20090109
  Serious: Yes (Hospitalization, Other)
  Sender: FDA-Public Use
  Company Number: DE-WYE-G01604108

PATIENT
  Sex: Male
  Weight: 12.5 kg

DRUGS (10)
  1. REFACTO [Suspect]
     Indication: FACTOR VIII DEFICIENCY
     Dosage: 41 IU/KG 3X PER WEEK FOR PROPHYLAXIS AND 250 IU ON DEMAND
     Route: 042
     Dates: start: 20080225, end: 20080101
  2. REFACTO [Suspect]
     Route: 042
     Dates: start: 20080609, end: 20080621
  3. REFACTO [Suspect]
     Route: 042
     Dates: start: 20080601, end: 20080607
  4. REFACTO [Suspect]
     Route: 042
     Dates: start: 20080909
  5. REFACTO [Suspect]
     Dosage: 1500 IU
     Route: 042
     Dates: start: 20080622, end: 20080622
  6. REFACTO [Suspect]
     Route: 042
     Dates: start: 20080623, end: 20080623
  7. REFACTO [Suspect]
     Route: 042
     Dates: start: 20080624, end: 20080625
  8. REFACTO [Suspect]
     Route: 042
     Dates: start: 20080627, end: 20080709
  9. REFACTO [Suspect]
     Route: 042
     Dates: start: 20080711, end: 20080908
  10. NOVOSEVEN [Concomitant]
     Indication: ANTI FACTOR VIII ANTIBODY POSITIVE
     Dosage: 2X 1.2MG - 4X 2.4MG PER DAY
     Route: 042
     Dates: start: 20080611, end: 20080625

REACTIONS (3)
  - ANTI FACTOR VIII ANTIBODY POSITIVE [None]
  - CATHETER RELATED COMPLICATION [None]
  - HAEMORRHAGE [None]
